FAERS Safety Report 10941143 (Version 2)
Quarter: 2015Q2

REPORT INFORMATION
  Report Type: Spontaneous
  Country: US (occurrence: US)
  Receive Date: 20150322
  Receipt Date: 20150524
  Transmission Date: 20150821
  Serious: No
  Sender: FDA-Public Use
  Company Number: US-JNJFOC-20130816092

PATIENT
  Age: 90 Year
  Sex: Male

DRUGS (10)
  1. NORVASC [Concomitant]
     Active Substance: AMLODIPINE BESYLATE
  2. RHINOCORT [Concomitant]
     Active Substance: BUDESONIDE
  3. METAMUCIL [Concomitant]
     Active Substance: PLANTAGO SEED
  4. INVOKANA [Suspect]
     Active Substance: CANAGLIFLOZIN
     Indication: PRODUCT USED FOR UNKNOWN INDICATION
  5. ASPIRIN. [Concomitant]
     Active Substance: ASPIRIN
  6. PROSCAR [Concomitant]
     Active Substance: FINASTERIDE
  7. CRESTOR [Concomitant]
     Active Substance: ROSUVASTATIN CALCIUM
  8. ZESTRIL [Concomitant]
     Active Substance: LISINOPRIL
  9. ZYLOPRIM [Concomitant]
     Active Substance: ALLOPURINOL
  10. CORGARD [Concomitant]
     Active Substance: NADOLOL

REACTIONS (4)
  - Urticaria [Unknown]
  - Vision blurred [Unknown]
  - Pollakiuria [Unknown]
  - Rash [Unknown]
